FAERS Safety Report 4313341-3 (Version None)
Quarter: 2004Q1

REPORT INFORMATION
  Report Type: 
  Country: None (occurrence: None)
  Receive Date: 20040304
  Receipt Date: 20040223
  Transmission Date: 20041129
  Serious: Yes (Hospitalization)
  Sender: FDA-Public Use
  Company Number: US-JNJFOC-20040205479

PATIENT
  Age: 92 Year
  Sex: Female
  Weight: 47.6277 kg

DRUGS (3)
  1. ULTRACET [Suspect]
     Indication: ARTHRITIS
     Dosage: ORAL
     Route: 048
  2. ULTRACET [Suspect]
     Indication: PAIN
     Dosage: ORAL
     Route: 048
  3. HEART MEDICATION (CARDIAC THERAPY) [Concomitant]

REACTIONS (3)
  - BALANCE DISORDER [None]
  - FALL [None]
  - HIP FRACTURE [None]
